FAERS Safety Report 17748983 (Version 3)
Quarter: 2021Q2

REPORT INFORMATION
  Report Type: Spontaneous
  Country: US (occurrence: US)
  Receive Date: 20200505
  Receipt Date: 20210624
  Transmission Date: 20210716
  Serious: Yes (Hospitalization, Other)
  Sender: FDA-Public Use
  Company Number: US-GILEAD-2020-0463006

PATIENT
  Age: 54 Year
  Sex: Male
  Weight: 115 kg

DRUGS (14)
  1. BIKTARVY [Concomitant]
     Active Substance: BICTEGRAVIR SODIUM\EMTRICITABINE\TENOFOVIR ALAFENAMIDE FUMARATE
  2. WARFARIN [Concomitant]
     Active Substance: WARFARIN
  3. NORVIR [Concomitant]
     Active Substance: RITONAVIR
  4. TRAMADOL. [Concomitant]
     Active Substance: TRAMADOL
  5. TRUVADA [Suspect]
     Active Substance: EMTRICITABINE\TENOFOVIR DISOPROXIL FUMARATE
     Indication: HIV INFECTION
     Dosage: UNK
     Route: 048
     Dates: start: 200801, end: 201801
  6. AMOXICILLIN. [Concomitant]
     Active Substance: AMOXICILLIN
  7. OMEPRAZOLE. [Concomitant]
     Active Substance: OMEPRAZOLE
  8. FAMOTIDINE. [Concomitant]
     Active Substance: FAMOTIDINE
  9. ACETAMINOPHEN. [Concomitant]
     Active Substance: ACETAMINOPHEN
  10. EVOTAZ [Concomitant]
     Active Substance: ATAZANAVIR SULFATE\COBICISTAT
  11. REYATAZ [Concomitant]
     Active Substance: ATAZANAVIR SULFATE
  12. TRUVADA [Suspect]
     Active Substance: EMTRICITABINE\TENOFOVIR DISOPROXIL FUMARATE
     Dosage: UNK
     Route: 048
     Dates: start: 200801, end: 201609
  13. PREDNISONE. [Concomitant]
     Active Substance: PREDNISONE
  14. TIVICAY [Concomitant]
     Active Substance: DOLUTEGRAVIR SODIUM

REACTIONS (9)
  - Bone density decreased [Not Recovered/Not Resolved]
  - Pain [Unknown]
  - Osteonecrosis [Not Recovered/Not Resolved]
  - Anxiety [Not Recovered/Not Resolved]
  - Partner stress [Unknown]
  - Bone loss [Not Recovered/Not Resolved]
  - Emotional distress [Unknown]
  - Gait disturbance [Unknown]
  - Panic attack [Not Recovered/Not Resolved]

NARRATIVE: CASE EVENT DATE: 2011
